FAERS Safety Report 8316688-9 (Version None)
Quarter: 2012Q2

REPORT INFORMATION
  Report Type: 
  Country: None (occurrence: None)
  Receive Date: 20120425
  Receipt Date: 20120413
  Transmission Date: 20120825
  Serious: Yes (Hospitalization, Other)
  Sender: FDA-Public Use
  Company Number: JPI-P-020920

PATIENT
  Age: 66 Year
  Sex: Male

DRUGS (3)
  1. MULTIPLE UNSPECIFIED MEDICATIONS [Concomitant]
  2. XYREM [Suspect]
     Indication: FIBROMYALGIA
     Dosage: 3; 9 GM (1.5; 4.5 GM, 2 IN 1 D), ORAL
     Route: 048
     Dates: start: 20071211, end: 20120101
  3. XYREM [Suspect]
     Indication: FIBROMYALGIA
     Dosage: 3; 9 GM (1.5; 4.5 GM, 2 IN 1 D), ORAL
     Route: 048
     Dates: start: 20070730, end: 20120101

REACTIONS (13)
  - MIDDLE INSOMNIA [None]
  - INCORRECT DOSE ADMINISTERED [None]
  - LOSS OF CONSCIOUSNESS [None]
  - ABNORMAL SLEEP-RELATED EVENT [None]
  - PERSONALITY CHANGE [None]
  - DYSPHONIA [None]
  - PAIN [None]
  - WEIGHT DECREASED [None]
  - THERAPEUTIC RESPONSE DECREASED [None]
  - INSOMNIA [None]
  - NIGHT SWEATS [None]
  - ULCER HAEMORRHAGE [None]
  - POOR QUALITY SLEEP [None]
